FAERS Safety Report 8607050-X (Version None)
Quarter: 2012Q3

REPORT INFORMATION
  Report Type: 
  Country: None (occurrence: None)
  Receive Date: 20120821
  Receipt Date: 20120809
  Transmission Date: 20120928
  Serious: Yes (Other)
  Sender: FDA-Public Use
  Company Number: AR-AMGEN-ARGSP2012045673

PATIENT
  Age: 63 Year
  Sex: Female

DRUGS (3)
  1. ENBREL [Suspect]
     Indication: RHEUMATOID ARTHRITIS
     Dosage: 50 MG, EVERY 15 DAYS
     Route: 058
     Dates: start: 20110601, end: 20120101
  2. PREDNISONE [Concomitant]
     Dosage: UNK
     Route: 048
  3. NAPROXEN [Concomitant]
     Dosage: UNK
     Route: 048

REACTIONS (5)
  - IMMUNE SYSTEM DISORDER [None]
  - PAIN IN EXTREMITY [None]
  - ACCIDENT [None]
  - LIMB INJURY [None]
  - DEVICE RELATED INFECTION [None]
